FAERS Safety Report 17509117 (Version 2)
Quarter: 2020Q1

REPORT INFORMATION
  Report Type: Spontaneous
  Country: NL (occurrence: NL)
  Receive Date: 20200306
  Receipt Date: 20200318
  Transmission Date: 20200409
  Serious: Yes (Hospitalization)
  Sender: FDA-Public Use
  Company Number: NL-ASTRAZENECA-2020SE30850

PATIENT
  Age: 80 Year
  Sex: Male
  Weight: 71.2 kg

DRUGS (4)
  1. EVEROLIMUS. [Suspect]
     Active Substance: EVEROLIMUS
     Indication: NON-SMALL CELL LUNG CANCER
     Dosage: 5.0MG UNKNOWN
     Route: 048
     Dates: start: 20191121, end: 20200211
  2. EVEROLIMUS. [Suspect]
     Active Substance: EVEROLIMUS
     Indication: NON-SMALL CELL LUNG CANCER
     Dosage: UNKNOWN UNKNOWN
     Route: 048
     Dates: start: 20200203, end: 20200302
  3. OSIMERTINIB. [Suspect]
     Active Substance: OSIMERTINIB
     Indication: NON-SMALL CELL LUNG CANCER
     Dosage: 80.0MG UNKNOWN
     Route: 048
     Dates: start: 20181204
  4. EVEROLIMUS. [Suspect]
     Active Substance: EVEROLIMUS
     Indication: NON-SMALL CELL LUNG CANCER
     Dosage: UNKNOWN UNKNOWN
     Route: 048

REACTIONS (3)
  - Anaemia [Recovering/Resolving]
  - Renal failure [Recovering/Resolving]
  - Diarrhoea [Recovering/Resolving]

NARRATIVE: CASE EVENT DATE: 20200203
